FAERS Safety Report 24764113 (Version 2)
Quarter: 2025Q1

REPORT INFORMATION
  Report Type: Report from Study
  Country: US (occurrence: US)
  Receive Date: 20241223
  Receipt Date: 20250102
  Transmission Date: 20250408
  Serious: Yes (Other)
  Sender: ROCHE
  Company Number: US-ROCHE-10000155711

PATIENT
  Age: 83 Year
  Sex: Female

DRUGS (10)
  1. ESBRIET [Suspect]
     Active Substance: PIRFENIDONE
     Indication: Interstitial lung disease
     Dosage: TAKE 1 TABLET BY MOUTH 3 TIMES A DAY WITH A MEAL
     Route: 048
  2. ALBUTEROL SULFATE [Concomitant]
     Active Substance: ALBUTEROL SULFATE
  3. LIORESAL [Concomitant]
     Active Substance: BACLOFEN
     Route: 048
  4. LISINOPRIL [Concomitant]
     Active Substance: LISINOPRIL
     Route: 048
  5. LOPRESSOR [Concomitant]
     Active Substance: METOPROLOL TARTRATE
     Route: 048
  6. PRAVACHOL [Concomitant]
     Active Substance: PRAVASTATIN SODIUM
     Route: 048
  7. MYSOLINE [Concomitant]
     Active Substance: PRIMIDONE
     Route: 048
  8. XARELTO [Concomitant]
     Active Substance: RIVAROXABAN
     Route: 048
  9. PERI-COLACE [DOCUSATE SODIUM;SENNOSIDE A+B] [Concomitant]
     Route: 048
  10. ZOLOFT [Concomitant]
     Active Substance: SERTRALINE HYDROCHLORIDE
     Route: 048

REACTIONS (9)
  - Decreased appetite [Unknown]
  - Headache [Unknown]
  - Neuropathy peripheral [Unknown]
  - Pain [Unknown]
  - Dyspnoea [Unknown]
  - Rhinorrhoea [Unknown]
  - Memory impairment [Unknown]
  - Fall [Unknown]
  - Cerebral haemorrhage [Unknown]
